FAERS Safety Report 4828210-X (Version None)
Quarter: 2005Q4

REPORT INFORMATION
  Report Type: 
  Country: None (occurrence: None)
  Receive Date: 20051115
  Receipt Date: 20051114
  Transmission Date: 20060501
  Serious: Yes (Hospitalization)
  Sender: FDA-Public Use
  Company Number: DE-GLAXOSMITHKLINE-D0047963A

PATIENT
  Age: 50 Year
  Sex: Female

DRUGS (5)
  1. FLUTIDE [Suspect]
     Dosage: 1000MCG PER DAY
     Route: 065
     Dates: start: 20040101
  2. CIPRAMIL [Suspect]
     Dosage: 10MG PER DAY
     Route: 048
     Dates: start: 20040301, end: 20050109
  3. SPIRIVA [Concomitant]
     Dosage: 18MCG PER DAY
     Route: 065
     Dates: start: 20040101
  4. AEROMAX [Concomitant]
     Dosage: 100MCG PER DAY
     Route: 065
     Dates: start: 20040101
  5. SIMVASTATIN [Concomitant]
     Dosage: 20MG PER DAY
     Route: 048
     Dates: start: 20040101

REACTIONS (4)
  - FEAR [None]
  - HALLUCINATION, AUDITORY [None]
  - HALLUCINATION, VISUAL [None]
  - PERSECUTORY DELUSION [None]
